FAERS Safety Report 9618957 (Version 2)
Quarter: 2013Q4

REPORT INFORMATION
  Report Type: Spontaneous
  Country: US (occurrence: US)
  Receive Date: 20131014
  Receipt Date: 20131209
  Transmission Date: 20140711
  Serious: Yes (Other)
  Sender: FDA-Public Use
  Company Number: US-PFIZER INC-2013291395

PATIENT
  Sex: 0

DRUGS (1)
  1. SIROLIMUS [Suspect]
     Indication: LYMPHANGIOLEIOMYOMATOSIS
     Dosage: UNK

REACTIONS (5)
  - Off label use [Unknown]
  - Impaired healing [Unknown]
  - Foot fracture [Unknown]
  - Transplant dysfunction [Unknown]
  - Bone development abnormal [Unknown]
